FAERS Safety Report 5390565-8 (Version None)
Quarter: 2007Q3

REPORT INFORMATION
  Report Type: 
  Country: None (occurrence: None)
  Receive Date: 20070712
  Receipt Date: 20070517
  Transmission Date: 20080115
  Serious: Yes (Other)
  Sender: FDA-Public Use
  Company Number: 6033610

PATIENT
  Age: 70 Year
  Sex: Male

DRUGS (10)
  1. ENALAPRIL MALEATE [Suspect]
     Indication: DRUG USE FOR UNKNOWN INDICATION
  2. DIGOXIN [Concomitant]
  3. ACENOCOUMAROL (ACENOCOUMAROL) [Concomitant]
  4. THEOPHYLLINE [Concomitant]
  5. AMILORIDE (AMILORIDE HYDROCHLORIDE) [Concomitant]
  6. FUROSEMIDE [Concomitant]
  7. ISOSORBIDE MONONITRATE [Concomitant]
  8. PRAVASTATIN [Concomitant]
  9. LACIDIPINE (LACIDIPINE) [Concomitant]
  10. PREDNISONE TAB [Concomitant]

REACTIONS (8)
  - ACANTHOLYSIS [None]
  - AUTOANTIBODY POSITIVE [None]
  - GENERAL PHYSICAL CONDITION ABNORMAL [None]
  - NAIL PITTING [None]
  - NIKOLSKY'S SIGN [None]
  - ONYCHOLYSIS [None]
  - PEMPHIGUS [None]
  - SKIN HYPERTROPHY [None]
